FAERS Safety Report 19473171 (Version 1)
Quarter: 2021Q2

REPORT INFORMATION
  Report Type: Report from Study
  Country: US (occurrence: US)
  Receive Date: 20210629
  Receipt Date: 20210629
  Transmission Date: 20210717
  Serious: Yes (Hospitalization)
  Sender: FDA-Public Use
  Company Number: US-TAKEDA-2021TUS038820

PATIENT
  Age: 41 Year
  Sex: Male

DRUGS (8)
  1. TEDUGLUTIDE [Suspect]
     Active Substance: TEDUGLUTIDE
     Indication: SHORT-BOWEL SYNDROME
     Dosage: 3.850 MILLIGRAM
     Route: 065
     Dates: start: 201602, end: 201608
  2. DELTASONE [Concomitant]
     Active Substance: PREDNISONE
     Indication: BRONCHITIS CHRONIC
     Dosage: 5 MILLIGRAM, BID
     Route: 048
     Dates: start: 20170926, end: 20180222
  3. TEDUGLUTIDE [Suspect]
     Active Substance: TEDUGLUTIDE
     Indication: SHORT-BOWEL SYNDROME
     Dosage: 3.850 MILLIGRAM
     Route: 065
     Dates: start: 201602, end: 201608
  4. TEDUGLUTIDE [Suspect]
     Active Substance: TEDUGLUTIDE
     Indication: SHORT-BOWEL SYNDROME
     Dosage: 3.850 MILLIGRAM
     Route: 065
     Dates: start: 201602, end: 201608
  5. REQUIP [Concomitant]
     Active Substance: ROPINIROLE HYDROCHLORIDE
     Indication: IRON DEFICIENCY ANAEMIA
     Dosage: 1 MILLIGRAM, TID
     Route: 048
     Dates: start: 20170720, end: 20180222
  6. REQUIP [Concomitant]
     Active Substance: ROPINIROLE HYDROCHLORIDE
     Dosage: 2 MILLIGRAM, QD
     Route: 048
     Dates: start: 20170504, end: 20180222
  7. KAY CIEL [Concomitant]
     Active Substance: POTASSIUM CHLORIDE
     Indication: ELECTROLYTE IMBALANCE
     Dosage: 10 MILLIGRAM, PRN
     Route: 048
     Dates: start: 20170504, end: 20180222
  8. TEDUGLUTIDE [Suspect]
     Active Substance: TEDUGLUTIDE
     Indication: SHORT-BOWEL SYNDROME
     Dosage: 3.850 MILLIGRAM
     Route: 065
     Dates: start: 201602, end: 201608

REACTIONS (2)
  - Fistula [Recovered/Resolved]
  - Enterostomy closure [Recovered/Resolved]

NARRATIVE: CASE EVENT DATE: 20190319
